FAERS Safety Report 5065841-9 (Version None)
Quarter: 2006Q3

REPORT INFORMATION
  Report Type: 
  Country: None (occurrence: None)
  Receive Date: 20060731
  Receipt Date: 20040916
  Transmission Date: 20061208
  Serious: Yes (Hospitalization)
  Sender: FDA-Public Use
  Company Number: PHHO2004JP13213

PATIENT
  Age: 35 Year
  Sex: Male
  Weight: 55 kg

DRUGS (10)
  1. GASTER [Concomitant]
     Indication: GASTRITIS
  2. LOXONIN [Concomitant]
  3. MUCOSTA [Concomitant]
  4. GLEEVEC [Suspect]
     Indication: GASTROINTESTINAL STROMAL TUMOUR
     Dosage: 400 MG, BID
     Route: 048
     Dates: start: 20031206, end: 20040916
  5. GLEEVEC [Suspect]
     Dosage: 300 MG, BID
     Route: 048
     Dates: start: 20040920, end: 20041026
  6. GLEEVEC [Suspect]
     Dosage: 400 MG, QD
     Route: 048
     Dates: start: 20041106, end: 20050603
  7. GLEEVEC [Suspect]
     Dosage: NO TREATMENT
     Dates: start: 20040917, end: 20040919
  8. GLEEVEC [Suspect]
     Dosage: NO TREATMENT
     Dates: start: 20041027, end: 20041105
  9. LOPEMIN [Concomitant]
     Indication: DIARRHOEA
  10. LASIX [Concomitant]
     Indication: OEDEMA

REACTIONS (11)
  - ABDOMINAL PAIN [None]
  - ABSCESS DRAINAGE [None]
  - ANOREXIA [None]
  - BACK PAIN [None]
  - BILE DUCT OBSTRUCTION [None]
  - BILE DUCT STONE [None]
  - BILIARY DILATATION [None]
  - BILIARY DRAINAGE [None]
  - INFECTION [None]
  - JAUNDICE CHOLESTATIC [None]
  - LIVER ABSCESS [None]
